FAERS Safety Report 10101398 (Version 1)
Quarter: 2014Q2

REPORT INFORMATION
  Report Type: Spontaneous
  Country: US (occurrence: None)
  Receive Date: 20140423
  Receipt Date: 20140423
  Transmission Date: 20141212
  Serious: No
  Sender: FDA-Public Use
  Company Number: None

PATIENT
  Age: 75 Year
  Sex: Male
  Weight: 98.43 kg

DRUGS (1)
  1. SENSODYNE PRONAMEL [Suspect]
     Indication: DENTAL CARE
     Dates: start: 20140407, end: 20140417

REACTIONS (2)
  - Gingival pain [None]
  - Toothache [None]
